FAERS Safety Report 19772453 (Version 1)
Quarter: 2021Q3

REPORT INFORMATION
  Report Type: Spontaneous
  Country: US (occurrence: US)
  Receive Date: 20210827
  Receipt Date: 20210827
  Transmission Date: 20211014
  Serious: No
  Sender: FDA-Public Use
  Company Number: None

PATIENT
  Sex: Female

DRUGS (1)
  1. METHOTREXATE 2.5 MG HIKMA [Suspect]
     Active Substance: METHOTREXATE
     Route: 048
     Dates: start: 202105

REACTIONS (3)
  - Therapy interrupted [None]
  - Cardiac failure [None]
  - Myocardial infarction [None]
